FAERS Safety Report 20084946 (Version 1)
Quarter: 2021Q4

REPORT INFORMATION
  Report Type: Report from Study
  Country: BR (occurrence: BR)
  Receive Date: 20211118
  Receipt Date: 20211118
  Transmission Date: 20220303
  Serious: Yes (Other)
  Sender: FDA-Public Use
  Company Number: BR-NOVARTISPH-NVSC2021BR255422

PATIENT
  Age: 44 Year
  Sex: Female

DRUGS (9)
  1. LETROZOLE [Suspect]
     Active Substance: LETROZOLE
     Indication: Product used for unknown indication
     Dosage: 2.5 MG
     Route: 048
     Dates: start: 202011
  2. TAMOXIFEN [Suspect]
     Active Substance: TAMOXIFEN
     Indication: Product used for unknown indication
     Dosage: 20 MG
     Route: 048
  3. EPIRUBICIN [Concomitant]
     Active Substance: EPIRUBICIN
     Indication: Product used for unknown indication
     Dosage: 90 MG/M2 (D1)
     Route: 065
  4. DOCETAXEL [Concomitant]
     Active Substance: DOCETAXEL
     Indication: Product used for unknown indication
     Dosage: 100 MG/M2 (D1 EVERY 21 DAYS FOR 4 MORE)
     Route: 065
  5. GOSERELIN [Concomitant]
     Active Substance: GOSERELIN
     Indication: Therapeutic ovarian suppression
     Dosage: 10.8 MG, QUARTERLY
     Route: 058
  6. FULVESTRANT [Concomitant]
     Active Substance: FULVESTRANT
     Indication: Product used for unknown indication
     Dosage: 500 MG (LOADING DOSE D1 D15, FOLLOWED BY 500 MG INTRAMUSCULAR EVERY 28 DAYS FOR MAINTENANCE)
     Route: 030
     Dates: start: 202106
  7. ALPELISIB [Concomitant]
     Active Substance: ALPELISIB
     Indication: Product used for unknown indication
     Dosage: 300 MG
     Route: 048
     Dates: start: 202106
  8. CYCLOPHOSPHAMIDE [Concomitant]
     Active Substance: CYCLOPHOSPHAMIDE
     Indication: Product used for unknown indication
     Dosage: 600 MG/M2 (D1 EVERY 21 DAYS FOR 4 CYCLES)
     Route: 065
  9. PALBOCICLIB [Concomitant]
     Active Substance: PALBOCICLIB
     Indication: Product used for unknown indication
     Dosage: 125 MG (D1 TO D21, WITH CYCLES EVERY 28 DAYS(3), UNTIL REGIMEN FAILURE OR PROHIBITIVE TOXICITY)
     Route: 048
     Dates: start: 202011

REACTIONS (10)
  - Leukopenia [Unknown]
  - Malignant pleural effusion [Unknown]
  - Dyspnoea [Unknown]
  - Metastases to liver [Unknown]
  - Breast cancer [Unknown]
  - Malignant neoplasm progression [Unknown]
  - PIK3CA-activated mutation [Unknown]
  - Hilar lymphadenopathy [Unknown]
  - Lymphadenopathy mediastinal [Unknown]
  - Blood glucose increased [Unknown]

NARRATIVE: CASE EVENT DATE: 20210501
